FAERS Safety Report 13659540 (Version 1)
Quarter: 2017Q2

REPORT INFORMATION
  Report Type: Spontaneous
  Country: US (occurrence: US)
  Receive Date: 20170615
  Receipt Date: 20170615
  Transmission Date: 20170830
  Serious: Yes (Hospitalization)
  Sender: FDA-Public Use
  Company Number: None

PATIENT
  Age: 22 Year
  Sex: Female
  Weight: 80.81 kg

DRUGS (1)
  1. NEXPLANON [Suspect]
     Active Substance: ETONOGESTREL

REACTIONS (6)
  - Hypoaesthesia [None]
  - Device dislocation [None]
  - Musculoskeletal disorder [None]
  - Complication of device removal [None]
  - Scar [None]
  - Implant site atrophy [None]

NARRATIVE: CASE EVENT DATE: 20161013
